FAERS Safety Report 11899524 (Version 1)
Quarter: 2016Q1

REPORT INFORMATION
  Report Type: Spontaneous
  Country: US (occurrence: US)
  Receive Date: 20160108
  Receipt Date: 20160108
  Transmission Date: 20160526
  Serious: No
  Sender: FDA-Public Use
  Company Number: US-ABBVIE-15P-163-1444255-00

PATIENT
  Sex: Female

DRUGS (1)
  1. VIEKIRA PAK [Suspect]
     Active Substance: DASABUVIR\OMBITASVIR\PARITAPREVIR\RITONAVIR
     Indication: HEPATITIS C
     Route: 048
     Dates: start: 2015

REACTIONS (5)
  - Nausea [Unknown]
  - Blood bilirubin increased [Recovering/Resolving]
  - Vomiting [Unknown]
  - Jaundice [Unknown]
  - Fatigue [Unknown]

NARRATIVE: CASE EVENT DATE: 2015
